FAERS Safety Report 6195456-0 (Version None)
Quarter: 2009Q2

REPORT INFORMATION
  Report Type: 
  Country: None (occurrence: None)
  Receive Date: 20090519
  Receipt Date: 20090508
  Transmission Date: 20091009
  Serious: Yes (Other)
  Sender: FDA-Public Use
  Company Number: ZA-PFIZER INC-2009214534

PATIENT
  Age: 49 Year

DRUGS (2)
  1. XANOR SR [Suspect]
     Indication: PANIC ATTACK
     Dosage: 0.5 MG, 2X/DAY
     Route: 048
     Dates: start: 20090506
  2. NORFLOXACIN [Concomitant]
     Route: 048
     Dates: start: 20090401

REACTIONS (1)
  - FACIAL PALSY [None]
